FAERS Safety Report 7273221-0 (Version None)
Quarter: 2011Q1

REPORT INFORMATION
  Report Type: 
  Country: None (occurrence: None)
  Receive Date: 20110203
  Receipt Date: 20110125
  Transmission Date: 20110831
  Serious: Yes (Hospitalization)
  Sender: FDA-Public Use
  Company Number: BE-ELI_LILLY_AND_COMPANY-BE201011000356

PATIENT
  Sex: Female
  Weight: 123 kg

DRUGS (6)
  1. CYMBALTA [Suspect]
     Dosage: UNK, UNKNOWN
  2. HYGROTON [Concomitant]
     Indication: HYPERTENSION
  3. THYROXIN [Concomitant]
     Indication: HYPOTHYROIDISM
  4. COVERSYL [Concomitant]
     Indication: HYPERTENSION
  5. NOBITEN [Concomitant]
     Indication: HYPERTENSION
  6. CYMBALTA [Suspect]
     Indication: DEPRESSION
     Dosage: 60 MG, DAILY (1/D)
     Route: 048
     Dates: end: 20101010

REACTIONS (2)
  - BLOOD CATECHOLAMINES INCREASED [None]
  - HYPERTENSION [None]
